FAERS Safety Report 15983033 (Version 1)
Quarter: 2019Q1

REPORT INFORMATION
  Report Type: Spontaneous
  Country: NO (occurrence: NO)
  Receive Date: 20190219
  Receipt Date: 20190219
  Transmission Date: 20190418
  Serious: Yes (Death, Hospitalization)
  Sender: FDA-Public Use
  Company Number: NO-009507513-1902NOR005123

PATIENT
  Age: 82 Year
  Sex: Female

DRUGS (16)
  1. KEYTRUDA [Suspect]
     Active Substance: PEMBROLIZUMAB
     Indication: BRONCHIAL CARCINOMA
     Dosage: EVERY MONTH, 200 MG. THE LAST, FOURTH DOSAGE: 100 MG DUE TO THROMBOCYTOPENIA.
     Route: 042
     Dates: start: 20180725, end: 20181031
  2. CALCIGRAN FORTE [Concomitant]
     Active Substance: CALCIUM CARBONATE\CHOLECALCIFEROL
     Dosage: 1 DOSAGE FORM, DAILY(QD); STRENGTH: 500MG+400IU
     Route: 048
  3. LAXOBERAL [Concomitant]
     Active Substance: SODIUM PICOSULFATE
     Dosage: 10-15 DROPS WHEN NEEDED
     Route: 048
  4. CYANOCOBALAMIN. [Concomitant]
     Active Substance: CYANOCOBALAMIN
     Dosage: UNK UNK, QM3
     Route: 030
  5. VOLTAROL (DICLOFENAC SODIUM) [Concomitant]
     Active Substance: DICLOFENAC SODIUM
     Dosage: APPLIED WHEN NEEDED
     Route: 003
  6. ZOLPIDEM [Concomitant]
     Active Substance: ZOLPIDEM\ZOLPIDEM TARTRATE
     Dosage: 10 MG EVERY EVENING
  7. SOMAC [Concomitant]
     Active Substance: PANTOPRAZOLE SODIUM
     Dosage: 40 MILLIGRAM, DAILY(QD)
     Route: 048
  8. LOSARTAN. [Concomitant]
     Active Substance: LOSARTAN
     Dosage: 50 MILLIGRAM, DAILY(QD)
     Route: 048
  9. NEURONTIN [Concomitant]
     Active Substance: GABAPENTIN
     Dosage: 300 MILLIGRAM, Q12H
     Route: 048
  10. TRAMAGETIC [Concomitant]
     Active Substance: TRAMADOL
     Dosage: 300 MILLIGRAM, DAILY(QD)
     Route: 048
  11. AMLODIPINE [Concomitant]
     Active Substance: AMLODIPINE BESYLATE
     Dosage: 5 MILLIGRAM, DAILY(QD)
  12. ALLOPURINOL. [Concomitant]
     Active Substance: ALLOPURINOL
     Dosage: 100 MILLIGRAM, DAILY(QD)
  13. LACTULOSE. [Concomitant]
     Active Substance: LACTULOSE
     Dosage: 10-15 ML TWO TIMES A DAY WHEN NEEDED
  14. VENTOLINE (ALBUTEROL) [Concomitant]
     Active Substance: ALBUTEROL
     Dosage: 1 DOSAGE FORM MAXIMUM FOUR TIMES A DAY WHEN NEEDED
     Route: 055
  15. SERETIDE [Concomitant]
     Active Substance: FLUTICASONE PROPIONATE\SALMETEROL XINAFOATE
     Dosage: 2 DOSAGE FORM; BID
     Route: 055
  16. LETROZOLE. [Concomitant]
     Active Substance: LETROZOLE
     Dosage: 2.5 MILLIGRAM, DAILY(QD)

REACTIONS (2)
  - Thrombocytopenia [Unknown]
  - Interstitial lung disease [Fatal]

NARRATIVE: CASE EVENT DATE: 20180907
